FAERS Safety Report 5090078-7 (Version None)
Quarter: 2006Q3

REPORT INFORMATION
  Report Type: 
  Country: None (occurrence: None)
  Receive Date: 20060821
  Receipt Date: 20060810
  Transmission Date: 20061208
  Serious: Yes (Death, Hospitalization, Other)
  Sender: FDA-Public Use
  Company Number: 29632

PATIENT
  Age: 80 Year
  Sex: Male
  Weight: 57 kg

DRUGS (1)
  1. LEUCOVORIN CALCIUM [Suspect]
     Indication: BILIARY NEOPLASM
     Dosage: 25MG/M2/QDX5/IV
     Route: 042

REACTIONS (8)
  - ASTHENIA [None]
  - DEHYDRATION [None]
  - DISEASE PROGRESSION [None]
  - GENERAL PHYSICAL HEALTH DETERIORATION [None]
  - MUCOSAL INFLAMMATION [None]
  - ORAL INTAKE REDUCED [None]
  - ORAL PAIN [None]
  - PHARYNGOLARYNGEAL PAIN [None]
